FAERS Safety Report 17206746 (Version 1)
Quarter: 2019Q4

REPORT INFORMATION
  Report Type: Spontaneous
  Country: SE (occurrence: SE)
  Receive Date: 20191227
  Receipt Date: 20191227
  Transmission Date: 20200122
  Serious: Yes (Hospitalization)
  Sender: FDA-Public Use
  Company Number: SE-TEVA-2019-SE-1157317

PATIENT
  Age: 57 Year
  Sex: Male

DRUGS (4)
  1. OXASCAND [Suspect]
     Active Substance: OXAZEPAM
     Dosage: 125 MG
     Route: 048
     Dates: start: 20180903, end: 20180903
  2. MIRTAZAPINE. [Suspect]
     Active Substance: MIRTAZAPINE
     Dosage: 150 MG
     Route: 048
     Dates: start: 20180903, end: 20180903
  3. PROPAVAN [Suspect]
     Active Substance: PROPIOMAZINE
     Dosage: 375 MG
     Route: 048
     Dates: start: 20180903, end: 20180903
  4. ATARAX [Suspect]
     Active Substance: HYDROXYZINE HYDROCHLORIDE
     Dosage: 2 ATARAX
     Route: 048
     Dates: start: 20180903, end: 20180903

REACTIONS (5)
  - Intentional overdose [Unknown]
  - Intentional self-injury [Unknown]
  - Dizziness [Unknown]
  - Tremor [Unknown]
  - Fatigue [Unknown]

NARRATIVE: CASE EVENT DATE: 20180903
